FAERS Safety Report 14562367 (Version 1)
Quarter: 2018Q1

REPORT INFORMATION
  Report Type: Spontaneous
  Country: US (occurrence: US)
  Receive Date: 20180221
  Receipt Date: 20180221
  Transmission Date: 20180509
  Serious: No
  Sender: FDA-Public Use
  Company Number: None

PATIENT
  Age: 61 Year
  Sex: Male

DRUGS (2)
  1. LAB BLENDS CBD PAIN RELIEVER (LIDOCAINE\MENTHOL) [Suspect]
     Active Substance: LIDOCAINE\MENTHOL
  2. CANNABIDIOL\CANNABIS SATIVA SEED OIL (INACTIVE INGREDIENTS) [Suspect]
     Active Substance: CANNABIDIOL\CANNABIS SATIVA SEED OIL

REACTIONS (1)
  - Drug ineffective [None]
